FAERS Safety Report 6357405-1 (Version None)
Quarter: 2009Q3

REPORT INFORMATION
  Report Type: 
  Country: None (occurrence: None)
  Receive Date: 20090916
  Receipt Date: 20071008
  Transmission Date: 20100115
  Serious: Yes (Other)
  Sender: FDA-Public Use
  Company Number: US-ASTRAZENECA-2006UW21167

PATIENT
  Age: 15899 Day
  Sex: Female
  Weight: 90 kg

DRUGS (10)
  1. SEROQUEL [Suspect]
     Indication: DEPRESSION
     Route: 048
     Dates: start: 20030101
  2. SEROQUEL [Suspect]
     Indication: INSOMNIA
     Route: 048
     Dates: start: 20030101
  3. SEROQUEL [Suspect]
     Dosage: 100 - 300 MG
     Route: 048
     Dates: start: 20040220
  4. SEROQUEL [Suspect]
     Dosage: 100 - 300 MG
     Route: 048
     Dates: start: 20040220
  5. TOPMAC [Concomitant]
     Indication: WEIGHT CONTROL
     Dates: start: 20040401
  6. SINGULAIR [Concomitant]
     Dates: start: 20040220
  7. PAXIL [Concomitant]
     Dates: start: 20040220
  8. HYDROCODONE BITARTRATE AND ACETAMINOPHEN [Concomitant]
     Dosage: 10 / 660 MG
     Dates: start: 20040225
  9. EFFEXOR XR [Concomitant]
     Dates: start: 20040420
  10. CLONIDINE [Concomitant]
     Dates: start: 20040420

REACTIONS (5)
  - DIABETES MELLITUS [None]
  - DIABETIC NEUROPATHY [None]
  - PERIPHERAL SENSORY NEUROPATHY [None]
  - TYPE 1 DIABETES MELLITUS [None]
  - TYPE 2 DIABETES MELLITUS [None]
